FAERS Safety Report 23950860 (Version 1)
Quarter: 2024Q2

REPORT INFORMATION
  Report Type: Spontaneous
  Country: HR (occurrence: HR)
  Receive Date: 20240607
  Receipt Date: 20240607
  Transmission Date: 20240715
  Serious: Yes (Other)
  Sender: FDA-Public Use
  Company Number: HR-009507513-2406HRV000397

PATIENT
  Age: 63 Year
  Sex: Female

DRUGS (1)
  1. KEYTRUDA [Suspect]
     Active Substance: PEMBROLIZUMAB
     Indication: Non-small cell lung cancer
     Dosage: UNK
     Dates: start: 20211012, end: 2022

REACTIONS (5)
  - Colitis ulcerative [Unknown]
  - Malignant neoplasm progression [Unknown]
  - Radiation necrosis [Unknown]
  - Brain oedema [Unknown]
  - Adrenomegaly [Unknown]

NARRATIVE: CASE EVENT DATE: 20211205
